FAERS Safety Report 16830120 (Version 1)
Quarter: 2019Q3

REPORT INFORMATION
  Report Type: Report from Study
  Country: US (occurrence: US)
  Receive Date: 20190919
  Receipt Date: 20190919
  Transmission Date: 20191005
  Serious: Yes (Hospitalization)
  Sender: FDA-Public Use
  Company Number: US-ACTELION-A-NJ2019-195810

PATIENT
  Age: 65 Year
  Sex: Female

DRUGS (18)
  1. SILDENAFIL. [Concomitant]
     Active Substance: SILDENAFIL
     Indication: PULMONARY HYPERTENSION
     Dosage: 100 MG, TID
  2. OXYCODONE [Concomitant]
     Active Substance: OXYCODONE
  3. OPSUMIT [Suspect]
     Active Substance: MACITENTAN
     Indication: PULMONARY HYPERTENSION
     Dosage: 10 MG, QD
     Route: 048
     Dates: start: 201708
  4. MULTIVITAMIN [Concomitant]
     Active Substance: VITAMINS
  5. FERROUS FUMARATE [Concomitant]
     Active Substance: FERROUS FUMARATE
  6. REMODULIN [Concomitant]
     Active Substance: TREPROSTINIL
     Indication: PULMONARY HYPERTENSION
     Route: 042
  7. MAGNESIUM CHLORIDE. [Concomitant]
     Active Substance: MAGNESIUM CHLORIDE
  8. ONDANSETRON [Concomitant]
     Active Substance: ONDANSETRON
  9. LEVOTHYROXINE. [Concomitant]
     Active Substance: LEVOTHYROXINE
  10. TRIAMCINOLONE ACETATE [Concomitant]
     Active Substance: TRIAMCINOLONE ACETONIDE
     Route: 061
  11. CALCIUM + VITAMIN D3 [Concomitant]
     Active Substance: CALCIUM CARBONATE\CHOLECALCIFEROL
  12. OMEPRAZOLE. [Concomitant]
     Active Substance: OMEPRAZOLE
  13. FLUOCINONIDE. [Concomitant]
     Active Substance: FLUOCINONIDE
     Route: 061
  14. SPIRONOLACTONE. [Concomitant]
     Active Substance: SPIRONOLACTONE
     Indication: PULMONARY HYPERTENSION
     Dosage: 25 MG, QD
  15. GABAPENTIN. [Concomitant]
     Active Substance: GABAPENTIN
  16. LYSINE [Concomitant]
     Active Substance: LYSINE
  17. DULOXETINE. [Concomitant]
     Active Substance: DULOXETINE
  18. OXYGEN. [Concomitant]
     Active Substance: OXYGEN
     Dosage: 2 LITERS HOME OXYGEN AT NIGHT

REACTIONS (6)
  - Purulent discharge [Recovering/Resolving]
  - Staphylococcal bacteraemia [Recovering/Resolving]
  - Catheter placement [Recovering/Resolving]
  - Central venous catheterisation [Recovering/Resolving]
  - Pain in extremity [Recovering/Resolving]
  - Pyrexia [Recovering/Resolving]

NARRATIVE: CASE EVENT DATE: 20190812
